FAERS Safety Report 9184939 (Version 1)
Quarter: 2013Q1

REPORT INFORMATION
  Report Type: Spontaneous
  Country: US (occurrence: US)
  Receive Date: 20130325
  Receipt Date: 20130325
  Transmission Date: 20140127
  Serious: Yes (Life-Threatening, Hospitalization)
  Sender: FDA-Public Use
  Company Number: US-BRISTOL-MYERS SQUIBB COMPANY-16541286

PATIENT
  Age: 80 Year
  Sex: Male
  Weight: 81.63 kg

DRUGS (3)
  1. ERBITUX [Suspect]
     Indication: SQUAMOUS CELL CARCINOMA
     Dosage: VOL: 400 ML, RATE:200ML/HR W/A FILTER,0.22 MICRON
     Dates: start: 20120418
  2. ZOCOR [Concomitant]
  3. CARDURA [Concomitant]

REACTIONS (1)
  - Cardiac arrest [Unknown]
